FAERS Safety Report 8958896 (Version 1)
Quarter: 2012Q4

REPORT INFORMATION
  Report Type: Report from Study
  Country: CN (occurrence: CN)
  Receive Date: 20121212
  Receipt Date: 20121212
  Transmission Date: 20130627
  Serious: Yes (Death)
  Sender: FDA-Public Use
  Company Number: CN-ASTELLAS-2012JP011474

PATIENT
  Age: 38 Year
  Sex: Female

DRUGS (1)
  1. TACROLIMUS CAPSULES [Suspect]
     Indication: MYOSITIS
     Dosage: 3 mg, bid
     Route: 048
     Dates: start: 20120613, end: 2012

REACTIONS (3)
  - Off label use [Unknown]
  - Interstitial lung disease [Fatal]
  - Death [Fatal]
